FAERS Safety Report 8766420 (Version 1)
Quarter: 2012Q4

REPORT INFORMATION
  Report Type: Report from Study
  Country: PT (occurrence: PT)
  Receive Date: 20120904
  Receipt Date: 20120904
  Transmission Date: 20130627
  Serious: Yes (Other)
  Sender: FDA-Public Use
  Company Number: PT-ROCHE-1101004

PATIENT
  Age: 46 Year
  Sex: Female

DRUGS (9)
  1. MABTHERA [Suspect]
     Indication: CUTANEOUS LUPUS ERYTHEMATOSUS
     Route: 065
  2. MABTHERA [Suspect]
     Dosage: AFTER 15 DAYS
     Route: 065
  3. AZATHIOPRINE [Concomitant]
     Dosage: DOSE 100-150 MG/DAY
     Route: 065
     Dates: start: 2004
  4. PREDNISOLONE [Concomitant]
     Dosage: DOSE: 5-7.5 MG/DAY WITH NO SUSTAINED RESPONSE
     Route: 065
     Dates: start: 2004
  5. PREDNISOLONE [Concomitant]
     Dosage: DOSE: 5-15 MG/DAY
     Route: 065
     Dates: start: 2007
  6. PREDNISOLONE [Concomitant]
     Route: 065
     Dates: start: 200804
  7. METHOTREXATE [Concomitant]
     Route: 065
     Dates: start: 2007
  8. THALIDOMIDE [Concomitant]
     Route: 065
     Dates: start: 2008
  9. THALIDOMIDE [Concomitant]
     Route: 065
     Dates: start: 200804

REACTIONS (3)
  - Disease progression [Unknown]
  - Skin lesion [Unknown]
  - Skin lesion [Unknown]
